FAERS Safety Report 11439229 (Version 1)
Quarter: 2015Q3

REPORT INFORMATION
  Report Type: Spontaneous
  Country: US (occurrence: US)
  Receive Date: 20150901
  Receipt Date: 20150901
  Transmission Date: 20151125
  Serious: No
  Sender: FDA-Public Use
  Company Number: US-ROCHE-773457

PATIENT
  Age: 56 Year
  Sex: Female

DRUGS (5)
  1. RIBAVIRIN. [Suspect]
     Active Substance: RIBAVIRIN
     Dosage: IN DIVIDED DOSES
     Route: 065
  2. TELAPREVIR [Suspect]
     Active Substance: TELAPREVIR
     Indication: HEPATITIS C
     Route: 065
     Dates: start: 20120928, end: 20121214
  3. PEGASYS [Suspect]
     Active Substance: PEGINTERFERON ALFA-2A
     Indication: HEPATITIS C
     Route: 058
  4. PEGASYS [Suspect]
     Active Substance: PEGINTERFERON ALFA-2A
     Route: 058
  5. RIBAVIRIN. [Suspect]
     Active Substance: RIBAVIRIN
     Indication: HEPATITIS C
     Dosage: IN DIVIDED DOSES
     Route: 065

REACTIONS (11)
  - Red blood cell count decreased [Unknown]
  - No therapeutic response [Unknown]
  - White blood cell count decreased [Unknown]
  - Vomiting [Unknown]
  - Cough [Unknown]
  - Weight decreased [Unknown]
  - Lip blister [Unknown]
  - Epistaxis [Unknown]
  - Diarrhoea [Unknown]
  - Dysgeusia [Unknown]
  - Vaginal haemorrhage [Unknown]

NARRATIVE: CASE EVENT DATE: 20110703
